FAERS Safety Report 23080559 (Version 2)
Quarter: 2024Q1

REPORT INFORMATION
  Report Type: Spontaneous
  Country: JP (occurrence: None)
  Receive Date: 20231018
  Receipt Date: 20240101
  Transmission Date: 20240409
  Serious: Yes (Death)
  Sender: FDA-Public Use
  Company Number: 2023A234538

PATIENT
  Age: 76 Year
  Sex: Male

DRUGS (2)
  1. LYNPARZA [Suspect]
     Active Substance: OLAPARIB
     Indication: Hormone-refractory prostate cancer
     Dosage: DOSE UNKNOWN
     Route: 048
     Dates: start: 20210928, end: 20221018
  2. GOSERELIN ACETATE [Concomitant]
     Active Substance: GOSERELIN ACETATE
     Indication: Hormone-refractory prostate cancer
     Dosage: EVERY 12 / WEEK
     Route: 058

REACTIONS (2)
  - Metastases to bone [Fatal]
  - Prostatic specific antigen increased [Fatal]

NARRATIVE: CASE EVENT DATE: 20220422
